FAERS Safety Report 9587743 (Version 1)
Quarter: 2013Q4

REPORT INFORMATION
  Report Type: Spontaneous
  Country: US (occurrence: US)
  Receive Date: 20131003
  Receipt Date: 20131003
  Transmission Date: 20140711
  Serious: No
  Sender: FDA-Public Use
  Company Number: US-COVIDIEN/TYCO HEALTHCARE/MALLINCKRODT-T201302351

PATIENT
  Sex: Female

DRUGS (2)
  1. EXALGO EXTENDED RELEASE [Suspect]
     Indication: PAIN
     Dosage: 16 MG, QD
     Route: 048
     Dates: start: 201304
  2. EXALGO EXTENDED RELEASE [Suspect]
     Dosage: 8 MG, QD
     Route: 048
     Dates: start: 201303, end: 201304

REACTIONS (1)
  - Pain [Unknown]
